FAERS Safety Report 7682519-3 (Version None)
Quarter: 2011Q3

REPORT INFORMATION
  Report Type: 
  Country: None (occurrence: None)
  Receive Date: 20110815
  Receipt Date: 20110808
  Transmission Date: 20111222
  Serious: Yes (Other)
  Sender: FDA-Public Use
  Company Number: SE-CEPHALON-US018374

PATIENT
  Sex: Female

DRUGS (3)
  1. DIANE TABLET [Concomitant]
     Route: 065
  2. MODAFINIL [Suspect]
     Indication: HYPERSOMNIA
     Route: 048
     Dates: start: 20060301, end: 20060321
  3. MODAFINIL [Suspect]
     Indication: NARCOLEPSY
     Dosage: 100MG TITRATED TO 300MG
     Route: 048
     Dates: start: 20060215, end: 20060301

REACTIONS (5)
  - DIZZINESS [None]
  - LOSS OF CONTROL OF LEGS [None]
  - NEUROPATHY PERIPHERAL [None]
  - DEPRESSED MOOD [None]
  - ANXIETY [None]
